FAERS Safety Report 8108272-7 (Version None)
Quarter: 2012Q1

REPORT INFORMATION
  Report Type: 
  Country: None (occurrence: None)
  Receive Date: 20120202
  Receipt Date: 20120110
  Transmission Date: 20120608
  Serious: No
  Sender: FDA-Public Use
  Company Number: US-AMGEN-USASP2012001794

PATIENT
  Age: 52 Year
  Sex: Female

DRUGS (3)
  1. AUGMENTIN '125' [Concomitant]
     Dosage: UNK
  2. BACTRIM DS [Concomitant]
     Dosage: UNK
  3. ENBREL [Suspect]
     Indication: RHEUMATOID ARTHRITIS
     Dosage: 50 MG, QWK
     Dates: start: 20100914

REACTIONS (9)
  - WOUND COMPLICATION [None]
  - VULVOVAGINAL PRURITUS [None]
  - PYREXIA [None]
  - MUSCULOSKELETAL PAIN [None]
  - MASS [None]
  - ABSCESS RUPTURE [None]
  - RASH PRURITIC [None]
  - VULVOVAGINAL PAIN [None]
  - ANAL ABSCESS [None]
